FAERS Safety Report 5238833-4 (Version None)
Quarter: 2007Q1

REPORT INFORMATION
  Report Type: 
  Country: None (occurrence: None)
  Receive Date: 20070215
  Receipt Date: 20070205
  Transmission Date: 20070707
  Serious: Yes (Other)
  Sender: FDA-Public Use
  Company Number: JP-PFIZER INC-2007007902

PATIENT
  Age: 12 Month
  Sex: Female

DRUGS (5)
  1. ZITHROMAC [Suspect]
     Dosage: DAILY DOSE:100MG
     Route: 048
     Dates: start: 20070123, end: 20070125
  2. HOKUNALIN [Concomitant]
     Route: 048
  3. MUCODYNE [Concomitant]
     Route: 048
  4. PERIACTIN [Concomitant]
     Route: 048
  5. ASVERIN [Concomitant]
     Route: 048

REACTIONS (3)
  - EPISTAXIS [None]
  - EYE HAEMORRHAGE [None]
  - OCULAR HYPERAEMIA [None]
